FAERS Safety Report 4319519-7 (Version None)
Quarter: 2004Q1

REPORT INFORMATION
  Report Type: 
  Country: None (occurrence: None)
  Receive Date: 20040316
  Receipt Date: 20040302
  Transmission Date: 20041129
  Serious: Yes (Hospitalization, Disabling)
  Sender: FDA-Public Use
  Company Number: USA040360713

PATIENT
  Sex: Male

DRUGS (1)
  1. CIALIS [Suspect]
     Indication: ERECTILE DYSFUNCTION

REACTIONS (5)
  - EYE DISORDER [None]
  - HAEMORRHAGE [None]
  - HYPOTENSION [None]
  - PROCEDURAL COMPLICATION [None]
  - VISUAL FIELD DEFECT [None]
